FAERS Safety Report 7040572-4 (Version None)
Quarter: 2010Q4

REPORT INFORMATION
  Report Type: 
  Country: None (occurrence: None)
  Receive Date: 20101006
  Receipt Date: 20100929
  Transmission Date: 20110411
  Serious: Yes (Hospitalization)
  Sender: FDA-Public Use
  Company Number: 2010MA003147

PATIENT
  Age: 75 Year
  Sex: Male
  Weight: 65.8 kg

DRUGS (4)
  1. GABAPENTIN [Suspect]
     Indication: ANXIETY
     Dosage: 300 MG; TID; PO
     Route: 048
  2. TRAZODONE [Concomitant]
  3. LIDOCAINE [Concomitant]
  4. CITALOPRAM HYDROBROMIDE [Concomitant]

REACTIONS (6)
  - CEREBELLAR SYNDROME [None]
  - CHOREA [None]
  - DRUG EFFECT DECREASED [None]
  - DYSARTHRIA [None]
  - DYSKINESIA [None]
  - SACCADIC EYE MOVEMENT [None]
